FAERS Safety Report 25005948 (Version 1)
Quarter: 2025Q1

REPORT INFORMATION
  Report Type: Spontaneous
  Country: US (occurrence: US)
  Receive Date: 20250224
  Receipt Date: 20250224
  Transmission Date: 20250409
  Serious: No
  Sender: PFIZER
  Company Number: US-PFIZER INC-PV202500021578

PATIENT
  Age: 41 Year
  Sex: Female

DRUGS (4)
  1. DUAVEE [Suspect]
     Active Substance: BAZEDOXIFENE ACETATE\ESTROGENS, CONJUGATED
     Dosage: UNK, 1X/DAY (0.45/20 ONCE DAILY)
     Route: 048
     Dates: start: 20240717
  2. ALBUTEROL [Concomitant]
     Active Substance: ALBUTEROL
  3. IBUPROFEN [Concomitant]
     Active Substance: IBUPROFEN
  4. CLARITIN [Concomitant]
     Active Substance: LORATADINE

REACTIONS (2)
  - Blood test abnormal [Unknown]
  - Coagulopathy [Unknown]
